FAERS Safety Report 4735703-2 (Version None)
Quarter: 2005Q3

REPORT INFORMATION
  Report Type: 
  Country: None (occurrence: None)
  Receive Date: 20050802
  Receipt Date: 20050718
  Transmission Date: 20060218
  Serious: No
  Sender: FDA-Public Use
  Company Number: VIS10201.2005

PATIENT
  Age: 62 Year
  Sex: Female

DRUGS (5)
  1. VISICOL [Suspect]
     Indication: COLONOSCOPY
     Dosage: 42 G DAILY PO
     Route: 048
     Dates: start: 20050515, end: 20050515
  2. COSOPT [Concomitant]
  3. ALPHAGAN P [Concomitant]
  4. XALATAN [Concomitant]
  5. ARTIFICIAL TEARS [Concomitant]

REACTIONS (10)
  - ABNORMAL SENSATION IN EYE [None]
  - EYE PAIN [None]
  - EYE SWELLING [None]
  - FLUID OVERLOAD [None]
  - INTRAOCULAR PRESSURE INCREASED [None]
  - NAUSEA [None]
  - OCULAR DISCOMFORT [None]
  - VISION BLURRED [None]
  - VISUAL ACUITY REDUCED [None]
  - VOMITING [None]
